FAERS Safety Report 9552168 (Version 1)
Quarter: 2013Q3

REPORT INFORMATION
  Report Type: Spontaneous
  Country: US (occurrence: None)
  Receive Date: 20130724
  Receipt Date: 20130724
  Transmission Date: 20140515
  Serious: Yes (Hospitalization)
  Sender: FDA-Public Use
  Company Number: PHEH2013US007025

PATIENT
  Age: 71 Year
  Sex: Female

DRUGS (3)
  1. DIOVAN HCT [Suspect]
     Indication: HYPERTENSION
     Dosage: VALS, HYDRO
     Route: 048
  2. XANAX (ALPRAZOLAM) [Concomitant]
  3. GLUCOTROL XL (GLIPIZIDE) [Concomitant]

REACTIONS (2)
  - Blood pressure increased [None]
  - Arthritis [None]
